FAERS Safety Report 9729983 (Version 1)
Quarter: 2013Q4

REPORT INFORMATION
  Report Type: Spontaneous
  Country: PK (occurrence: PK)
  Receive Date: 20131204
  Receipt Date: 20131204
  Transmission Date: 20140711
  Serious: Yes (Other)
  Sender: FDA-Public Use
  Company Number: PK-SPECTRUM PHARMACEUTICALS, INC.-13-F-PK-00310

PATIENT
  Sex: 0

DRUGS (4)
  1. FLUOROURACIL [Suspect]
     Indication: COLORECTAL CANCER
     Dosage: 2400 MG/M2 CONTINUOUS INFUSIONFOR 46HRS.
     Route: 042
  2. FLUOROURACIL [Suspect]
     Dosage: 400 MG/M2, BOLUS ON DAY 1
     Route: 042
  3. OXALIPLATIN [Suspect]
     Indication: COLORECTAL CANCER
     Dosage: 100 MG/M2, ON DAY 1
     Route: 042
  4. LEUCOVORIN /00566701/ [Suspect]
     Indication: COLORECTAL CANCER
     Dosage: 400 MG/M2, ON DAY 1 AS 2-HR INFUSION BEFORE 5-FU
     Route: 042

REACTIONS (7)
  - Neuropathy peripheral [Unknown]
  - Hypoaesthesia [Unknown]
  - Insomnia [Unknown]
  - Dizziness [Unknown]
  - Paraesthesia [Unknown]
  - Headache [Unknown]
  - Dysgeusia [Unknown]
